FAERS Safety Report 8278692-9 (Version None)
Quarter: 2012Q2

REPORT INFORMATION
  Report Type: 
  Country: None (occurrence: None)
  Receive Date: 20120412
  Receipt Date: 20110502
  Transmission Date: 20120825
  Serious: No
  Sender: FDA-Public Use
  Company Number: US-ASTRAZENECA-2011SE25210

PATIENT
  Sex: Female
  Weight: 63.5 kg

DRUGS (4)
  1. NEXIUM [Suspect]
     Route: 048
  2. TOBAX [Concomitant]
  3. PRILOSEC [Suspect]
     Route: 048
  4. CLARINEX [Concomitant]

REACTIONS (3)
  - NASAL DISCOMFORT [None]
  - NASAL CONGESTION [None]
  - DRUG INEFFECTIVE [None]
